FAERS Safety Report 5042341-3 (Version None)
Quarter: 2006Q3

REPORT INFORMATION
  Report Type: 
  Country: None (occurrence: None)
  Receive Date: 20060705
  Receipt Date: 20060626
  Transmission Date: 20061208
  Serious: Yes (Other)
  Sender: FDA-Public Use
  Company Number: PHNU2006DE02392

PATIENT
  Sex: Female

DRUGS (5)
  1. TEGRETOL [Suspect]
     Indication: SIMPLE PARTIAL SEIZURES
     Dosage: 400 MG/DAY
     Route: 048
     Dates: start: 19880101, end: 20050101
  2. TEGRETOL [Suspect]
     Dosage: 350 MG/DAY
     Route: 048
     Dates: start: 20050101
  3. BISOPROLOL FUMARATE [Concomitant]
     Dates: start: 19960101
  4. L-THYROXIN [Concomitant]
     Dates: start: 20050101
  5. LEXOTANIL [Concomitant]

REACTIONS (4)
  - INTRAOCULAR PRESSURE INCREASED [None]
  - OPTIC ATROPHY [None]
  - VISUAL DISTURBANCE [None]
  - VISUAL FIELD DEFECT [None]
